FAERS Safety Report 14239850 (Version 1)
Quarter: 2017Q4

REPORT INFORMATION
  Report Type: Spontaneous
  Country: US (occurrence: US)
  Receive Date: 20171128
  Receipt Date: 20171128
  Transmission Date: 20180321
  Serious: Yes (Death, Life-Threatening, Hospitalization)
  Sender: FDA-Public Use
  Company Number: None

PATIENT
  Age: 95 Year
  Sex: Female
  Weight: 47.7 kg

DRUGS (2)
  1. XARELTO [Suspect]
     Active Substance: RIVAROXABAN
     Indication: ATRIAL FIBRILLATION
     Route: 048
     Dates: start: 20161108, end: 20170504
  2. ASPIRIN. [Concomitant]
     Active Substance: ASPIRIN

REACTIONS (8)
  - Subdural haematoma [None]
  - Sepsis [None]
  - Hypotension [None]
  - Respiratory failure [None]
  - Cardio-respiratory arrest [None]
  - Pneumonia klebsiella [None]
  - Urosepsis [None]
  - Renal failure [None]

NARRATIVE: CASE EVENT DATE: 20170504
